FAERS Safety Report 10215832 (Version 1)
Quarter: 2014Q2

REPORT INFORMATION
  Report Type: Spontaneous
  Country: US (occurrence: None)
  Receive Date: 20140603
  Receipt Date: 20140603
  Transmission Date: 20141212
  Serious: No
  Sender: FDA-Public Use
  Company Number: None

PATIENT
  Age: 13 Year
  Sex: Male
  Weight: 45.36 kg

DRUGS (4)
  1. METHYLPHENIDATE [Suspect]
     Indication: ATTENTION DEFICIT/HYPERACTIVITY DISORDER
     Route: 048
     Dates: start: 20140601, end: 20140601
  2. CONCERTA [Concomitant]
  3. LAMOTRIGINE [Concomitant]
  4. INTUNIV [Concomitant]

REACTIONS (3)
  - No therapeutic response [None]
  - Product substitution issue [None]
  - No therapeutic response [None]
